FAERS Safety Report 23636704 (Version 1)
Quarter: 2024Q1

REPORT INFORMATION
  Report Type: Spontaneous
  Country: US (occurrence: US)
  Receive Date: 20240315
  Receipt Date: 20240315
  Transmission Date: 20240409
  Serious: No
  Sender: FDA-Public Use
  Company Number: US-Covis Pharma GmbH-2024COV00232

PATIENT
  Age: 66 Year
  Sex: Male

DRUGS (11)
  1. RILUTEK [Suspect]
     Active Substance: RILUZOLE
     Route: 048
  2. RELYVRIO [Suspect]
     Active Substance: SODIUM PHENYLBUTYRATE\TAURURSODIOL
     Indication: Amyotrophic lateral sclerosis
     Dosage: 1 DOSAGE FORM 1 SACHET ONCE DAILY FOR 3 WEEKS THEN 1 SACHET TWICE DAILY, 2/DAYS
     Route: 048
     Dates: start: 20231020
  3. VITAMINS [Concomitant]
     Active Substance: VITAMINS
  4. FLECAINIDE ACETATE [Concomitant]
     Active Substance: FLECAINIDE ACETATE
  5. IBUPROFEN [Concomitant]
     Active Substance: IBUPROFEN
  6. Vitamin b complex (Cyanocobalamin) [Concomitant]
  7. LOSARTAN POTASSIUM [Concomitant]
     Active Substance: LOSARTAN POTASSIUM
  8. METOPROLOL SUCCINATE [Concomitant]
     Active Substance: METOPROLOL SUCCINATE
  9. FINASTERIDE [Concomitant]
     Active Substance: FINASTERIDE
  10. TAMSULOSIN HYDROCHLORIDE [Concomitant]
     Active Substance: TAMSULOSIN HYDROCHLORIDE
  11. RADICAVA ORS [Concomitant]
     Active Substance: EDARAVONE

REACTIONS (5)
  - Rectal haemorrhage [Unknown]
  - Skin irritation [Unknown]
  - Gastrointestinal disorder [Recovered/Resolved]
  - Flatulence [Recovered/Resolved]
  - Abdominal discomfort [Unknown]
